FAERS Safety Report 17506846 (Version 1)
Quarter: 2020Q1

REPORT INFORMATION
  Report Type: Other
  Country: FR (occurrence: FR)
  Receive Date: 20200305
  Receipt Date: 20200305
  Transmission Date: 20200409
  Serious: Yes (Hospitalization)
  Sender: FDA-Public Use
  Company Number: FR-CELLTRION INC.-2020FR019797

PATIENT

DRUGS (2)
  1. RITUXIMAB (UNKNOWN) [Suspect]
     Active Substance: RITUXIMAB
     Indication: CHRONIC LYMPHOCYTIC LEUKAEMIA
     Dosage: 905 MG /CURE
     Route: 041
     Dates: start: 20191021, end: 20200113
  2. BENDAMUSTINE [Suspect]
     Active Substance: BENDAMUSTINE
     Indication: CHRONIC LYMPHOCYTIC LEUKAEMIA
     Dosage: 181.25 MG/CURE
     Route: 041
     Dates: start: 20191021, end: 20200113

REACTIONS (3)
  - Acute kidney injury [Recovered/Resolved]
  - Product use issue [Unknown]
  - Toxic skin eruption [Recovered/Resolved]

NARRATIVE: CASE EVENT DATE: 201912
